FAERS Safety Report 16150151 (Version 1)
Quarter: 2019Q2

REPORT INFORMATION
  Report Type: Spontaneous
  Country: FR (occurrence: FR)
  Receive Date: 20190402
  Receipt Date: 20190402
  Transmission Date: 20190711
  Serious: Yes (Other)
  Sender: FDA-Public Use
  Company Number: FR-BAUSCH-BL-2019-009440

PATIENT
  Age: 33 Year
  Sex: Female

DRUGS (1)
  1. ATROPINE. [Suspect]
     Active Substance: ATROPINE
     Indication: FUNDOSCOPY
     Route: 047
     Dates: start: 20190318, end: 20190318

REACTIONS (1)
  - Anticholinergic syndrome [Not Recovered/Not Resolved]

NARRATIVE: CASE EVENT DATE: 20190318
